FAERS Safety Report 11722312 (Version 1)
Quarter: 2015Q4

REPORT INFORMATION
  Report Type: Spontaneous
  Country: BR (occurrence: BR)
  Receive Date: 20151111
  Receipt Date: 20151111
  Transmission Date: 20160304
  Serious: Yes (Other)
  Sender: FDA-Public Use
  Company Number: BR-ASTRAZENECA-2015SF08669

PATIENT
  Age: 64 Year
  Sex: Male
  Weight: 93 kg

DRUGS (9)
  1. CIPROFIBRATE [Concomitant]
     Active Substance: CIPROFIBRATE
     Dosage: 100 MG AT LUNCH
  2. ACARBOSE. [Concomitant]
     Active Substance: ACARBOSE
     Dosage: 50 1 X AFTER DINNER
  3. VILDAGLIPTIN WITH METFORMIN [Concomitant]
     Dosage: 50 + 1000 2X AO DAY
  4. ASPIRIN. [Concomitant]
     Active Substance: ASPIRIN
     Dosage: 100 AT LUNCH
  5. ATENOLOL. [Suspect]
     Active Substance: ATENOLOL
     Route: 048
  6. FORXIGA [Suspect]
     Active Substance: DAPAGLIFLOZIN
     Route: 048
  7. OMEPRAZOLE. [Suspect]
     Active Substance: OMEPRAZOLE
     Route: 048
  8. SIMVASTATIN. [Concomitant]
     Active Substance: SIMVASTATIN
  9. METFORMIN [Concomitant]
     Active Substance: METFORMIN HYDROCHLORIDE
     Dosage: 850 2 X

REACTIONS (2)
  - Weight decreased [Unknown]
  - Hypertension [Recovered/Resolved]
